FAERS Safety Report 17952224 (Version 1)
Quarter: 2020Q2

REPORT INFORMATION
  Report Type: Spontaneous
  Country: US (occurrence: US)
  Receive Date: 20200626
  Receipt Date: 20200626
  Transmission Date: 20200714
  Serious: No
  Sender: FDA-Public Use
  Company Number: US-INCYTE CORPORATION-2020IN006001

PATIENT

DRUGS (3)
  1. JAKAFI [Suspect]
     Active Substance: RUXOLITINIB
     Indication: CHRONIC GRAFT VERSUS HOST DISEASE
  2. JAKAFI [Suspect]
     Active Substance: RUXOLITINIB
     Indication: ILL-DEFINED DISORDER
     Dosage: 10 MILLIGRAM, BID
     Route: 048
     Dates: start: 20200421
  3. JAKAFI [Suspect]
     Active Substance: RUXOLITINIB
     Indication: MANTLE CELL LYMPHOMA

REACTIONS (3)
  - Off label use [Unknown]
  - Memory impairment [Unknown]
  - Fatigue [Unknown]

NARRATIVE: CASE EVENT DATE: 20200421
